FAERS Safety Report 4710766-9 (Version None)
Quarter: 2005Q3

REPORT INFORMATION
  Report Type: 
  Country: None (occurrence: None)
  Receive Date: 20050707
  Receipt Date: 20050620
  Transmission Date: 20060218
  Serious: Yes (Hospitalization)
  Sender: FDA-Public Use
  Company Number: EWC050443554

PATIENT
  Age: 63 Year
  Sex: Female
  Weight: 74 kg

DRUGS (9)
  1. GEMCITABINE HYDROCHLORIDE-IV (GEMCITABINE) [Suspect]
     Indication: NON-SMALL CELL LUNG CANCER
     Dosage: 2287 MG/2 OTHER
     Dates: start: 20050406
  2. CISPLATIN [Suspect]
     Indication: NON-SMALL CELL LUNG CANCER
     Dosage: 137 MG/1 OTHER
     Dates: start: 20050406
  3. FOLIC ACID [Concomitant]
  4. VITAMIN B-12 [Concomitant]
  5. DUROGESIC (FENTANYL) [Concomitant]
  6. MORPHINE [Concomitant]
  7. EUTIROX (LEVOTHYROXINE) [Concomitant]
  8. CORTISONE [Concomitant]
  9. DEXAMETHASONE [Concomitant]

REACTIONS (7)
  - ANAEMIA [None]
  - BRAIN OEDEMA [None]
  - CONFUSIONAL STATE [None]
  - DISORIENTATION [None]
  - EROSIVE OESOPHAGITIS [None]
  - GASTROINTESTINAL HAEMORRHAGE [None]
  - PYREXIA [None]
